FAERS Safety Report 6473361-X (Version None)
Quarter: 2009Q4

REPORT INFORMATION
  Report Type: 
  Country: None (occurrence: None)
  Receive Date: 20091204
  Receipt Date: 20091125
  Transmission Date: 20100525
  Serious: Yes (Hospitalization)
  Sender: FDA-Public Use
  Company Number: US-JNJFOC-20091102049

PATIENT
  Sex: Female
  Weight: 81.19 kg

DRUGS (2)
  1. REMICADE [Suspect]
     Dosage: DOSE, DATES AND FREQUENCY UNSPECIFIED
     Route: 042
  2. REMICADE [Suspect]
     Indication: RHEUMATOID ARTHRITIS
     Dosage: DOSE, DATES AND FREQUENCY UNSPECIFIED
     Route: 042

REACTIONS (4)
  - EAR PAIN [None]
  - GASTROOESOPHAGEAL REFLUX DISEASE [None]
  - OROPHARYNGEAL PAIN [None]
  - PYREXIA [None]
